FAERS Safety Report 5698680-6 (Version None)
Quarter: 2008Q2

REPORT INFORMATION
  Report Type: 
  Country: None (occurrence: None)
  Receive Date: 20080408
  Receipt Date: 20070316
  Transmission Date: 20081010
  Serious: No
  Sender: FDA-Public Use
  Company Number: US-BAYER-US-2007-006246

PATIENT
  Age: 47 Year
  Sex: Female
  Weight: 61 kg

DRUGS (1)
  1. CLIMARA [Suspect]
     Indication: OESTROGEN DEFICIENCY
     Route: 062
     Dates: start: 20000101

REACTIONS (6)
  - BLOOD OESTROGEN DECREASED [None]
  - DRUG INEFFECTIVE [None]
  - HOT FLUSH [None]
  - INTENTIONAL OVERDOSE [None]
  - MIGRAINE [None]
  - PHARMACEUTICAL PRODUCT COMPLAINT [None]
